FAERS Safety Report 7808615-5 (Version None)
Quarter: 2011Q4

REPORT INFORMATION
  Report Type: 
  Country: None (occurrence: None)
  Receive Date: 20111012
  Receipt Date: 20111010
  Transmission Date: 20120403
  Serious: No
  Sender: FDA-Public Use
  Company Number: US-PFIZER INC-2011242028

PATIENT
  Age: 25 Year
  Sex: Male
  Weight: 77.098 kg

DRUGS (2)
  1. ADVIL ALLERGY SINUS [Suspect]
     Indication: PYREXIA
     Dosage: UNK
     Dates: start: 20111010
  2. ADVIL ALLERGY SINUS [Suspect]
     Indication: NASAL CONGESTION

REACTIONS (1)
  - DRUG INEFFECTIVE [None]
